FAERS Safety Report 25710186 (Version 1)
Quarter: 2025Q3

REPORT INFORMATION
  Report Type: Report from Study
  Country: EU (occurrence: EU)
  Receive Date: 20250821
  Receipt Date: 20250821
  Transmission Date: 20251021
  Serious: Yes (Other)
  Sender: RANBAXY
  Company Number: EU-SUN PHARMACEUTICAL INDUSTRIES LTD-2025RR-523248

PATIENT
  Sex: Male

DRUGS (1)
  1. AMPHOTERICIN B [Suspect]
     Active Substance: AMPHOTERICIN B
     Indication: Leishmaniasis
     Dosage: 4 MILLIGRAM/KILOGRAM, DAILY
     Route: 065

REACTIONS (1)
  - Nephropathy toxic [Recovered/Resolved]
